FAERS Safety Report 8081224-1 (Version None)
Quarter: 2012Q1

REPORT INFORMATION
  Report Type: 
  Country: None (occurrence: None)
  Receive Date: 20120130
  Receipt Date: 20120124
  Transmission Date: 20120608
  Serious: No
  Sender: FDA-Public Use
  Company Number: US-PFIZER INC-2011025294

PATIENT
  Sex: Female

DRUGS (1)
  1. NARDIL [Suspect]
     Dosage: UNK

REACTIONS (2)
  - VIRAL INFECTION [None]
  - HYPERSENSITIVITY [None]
